FAERS Safety Report 10145850 (Version 1)
Quarter: 2014Q2

REPORT INFORMATION
  Report Type: Spontaneous
  Country: US (occurrence: US)
  Receive Date: 20140501
  Receipt Date: 20140501
  Transmission Date: 20141212
  Serious: No
  Sender: FDA-Public Use
  Company Number: US-ABBVIE-13P-163-1098618-00

PATIENT
  Sex: Male

DRUGS (4)
  1. CREON [Suspect]
     Indication: PANCREATITIS CHRONIC
     Dosage: WITH EACH MEAL
  2. LIPASE [Concomitant]
     Indication: PANCREATITIS CHRONIC
     Dosage: WITH EACH MEAL
  3. PROTEASE [Concomitant]
     Indication: PANCREATITIS CHRONIC
     Dosage: WITH EACH MEAL
  4. AMYLASE [Concomitant]
     Indication: PANCREATITIS CHRONIC
     Dosage: WITH EACH MEAL

REACTIONS (9)
  - Dehydration [Unknown]
  - Vomiting projectile [Unknown]
  - Diarrhoea [Unknown]
  - Nausea [Unknown]
  - Somnolence [Unknown]
  - Nightmare [Unknown]
  - Malaise [Unknown]
  - Dysgeusia [Unknown]
  - Parosmia [Unknown]
